FAERS Safety Report 6085633-1 (Version None)
Quarter: 2009Q1

REPORT INFORMATION
  Report Type: 
  Country: None (occurrence: None)
  Receive Date: 20090220
  Receipt Date: 20090210
  Transmission Date: 20090719
  Serious: Yes (Hospitalization)
  Sender: FDA-Public Use
  Company Number: US-PURDUE-USA_2009_0036963

PATIENT
  Age: 72 Year
  Sex: Female
  Weight: 68 kg

DRUGS (9)
  1. OXYCODONE HCL [Suspect]
     Indication: PAIN
     Dosage: UNK MG, PRN
     Route: 048
     Dates: start: 20080101, end: 20081026
  2. VEGF TRAP [Suspect]
     Indication: MACULAR DEGENERATION
     Dosage: UNK, SEE TEXT
     Dates: start: 20080213
  3. NAPROXEN [Suspect]
     Indication: OSTEOARTHRITIS
     Dosage: 500 MG, BID
     Route: 048
     Dates: start: 20080101, end: 20081026
  4. CRESTOR [Concomitant]
     Indication: HYPERCHOLESTEROLAEMIA
     Dosage: 10 MG, DAILY
     Route: 048
     Dates: start: 20030101
  5. PRESERVISION LUTEIN EYE VITA.+MIN.SUP.SOFTG. [Concomitant]
     Indication: MEDICAL DIET
     Dosage: UNK, UNK
     Route: 048
     Dates: start: 20080125
  6. VICODIN [Concomitant]
     Indication: PAIN
     Dosage: UNK MG, UNK
     Route: 048
     Dates: start: 20080227
  7. TRAMADOL HCL [Concomitant]
     Indication: OSTEOARTHRITIS
     Dosage: UNK MG, UNK
     Route: 048
     Dates: start: 20081026, end: 20081026
  8. MULTIVITAMIN                       /00831701/ [Concomitant]
     Indication: MEDICAL DIET
     Dosage: UNK, DAILY
     Route: 048
     Dates: start: 20080125
  9. CALCIUM                            /01637701/ [Concomitant]
     Indication: MEDICAL DIET
     Dosage: UNK MG, UNK
     Route: 048

REACTIONS (2)
  - DUODENAL ULCER HAEMORRHAGE [None]
  - URINARY TRACT INFECTION [None]
